FAERS Safety Report 11711838 (Version 1)
Quarter: 2015Q4

REPORT INFORMATION
  Report Type: Spontaneous
  Country: US (occurrence: US)
  Receive Date: 20151104
  Receipt Date: 20151104
  Transmission Date: 20160304
  Serious: No
  Sender: FDA-Public Use
  Company Number: US-ELI_LILLY_AND_COMPANY-US201106004678

PATIENT
  Age: 62 Year
  Sex: Female

DRUGS (3)
  1. FORTEO [Suspect]
     Active Substance: TERIPARATIDE
     Indication: OSTEOPOROSIS
     Dosage: 20 UG, QD
     Dates: start: 200909
  2. FORTEO [Suspect]
     Active Substance: TERIPARATIDE
     Dosage: 20 UG, QD
  3. VITAMINS [Concomitant]
     Active Substance: VITAMINS

REACTIONS (2)
  - Blood potassium decreased [Unknown]
  - Blood calcium increased [Not Recovered/Not Resolved]

NARRATIVE: CASE EVENT DATE: 201102
